FAERS Safety Report 4752221-6 (Version None)
Quarter: 2005Q3

REPORT INFORMATION
  Report Type: 
  Country: None (occurrence: None)
  Receive Date: 20050824
  Receipt Date: 20050824
  Transmission Date: 20060218
  Serious: Yes (Hospitalization, Other)
  Sender: FDA-Public Use
  Company Number: None

PATIENT
  Sex: Female
  Weight: 126.4 kg

DRUGS (6)
  1. CYCLOPHOSPHAMIDE [Suspect]
     Indication: BREAST CANCER
     Dosage: SEE IMAGE
     Dates: start: 20050719, end: 20050719
  2. DOXORUBICIN [Suspect]
     Dosage: SEE IMAGE
     Dates: start: 20050719, end: 20050719
  3. BENAZEPRIL [Concomitant]
  4. HYDROCHLOROTHIAZIDE [Concomitant]
  5. HYDROCODONE [Concomitant]
  6. LORATADINE [Concomitant]

REACTIONS (9)
  - ABSCESS [None]
  - BETA HAEMOLYTIC STREPTOCOCCAL INFECTION [None]
  - CELLULITIS STAPHYLOCOCCAL [None]
  - LOCALISED OEDEMA [None]
  - OPEN WOUND [None]
  - PSEUDOMONAS INFECTION [None]
  - PULMONARY EMBOLISM [None]
  - RASH PUSTULAR [None]
  - WOUND INFECTION STAPHYLOCOCCAL [None]
